FAERS Safety Report 21513303 (Version 1)
Quarter: 2022Q4

REPORT INFORMATION
  Report Type: Spontaneous
  Country: US (occurrence: US)
  Receive Date: 20221027
  Receipt Date: 20221027
  Transmission Date: 20230112
  Serious: No
  Sender: FDA-Public Use
  Company Number: US-BRISTOL-MYERS SQUIBB COMPANY-2022-127364

PATIENT
  Age: 64 Year
  Sex: Male
  Weight: 81.65 kg

DRUGS (2)
  1. REVLIMID [Suspect]
     Active Substance: LENALIDOMIDE
     Indication: Plasma cell myeloma
     Dosage: FREQUENCY: DAILY ON DAYS 1-21 EVERY 28 DAYS
     Route: 048
     Dates: start: 20201007
  2. REVLIMID [Suspect]
     Active Substance: LENALIDOMIDE
     Route: 065

REACTIONS (1)
  - Protein total increased [Unknown]

NARRATIVE: CASE EVENT DATE: 20221025
